FAERS Safety Report 9400422 (Version 1)
Quarter: 2013Q3

REPORT INFORMATION
  Report Type: Spontaneous
  Country: US (occurrence: US)
  Receive Date: 20130715
  Receipt Date: 20130715
  Transmission Date: 20140515
  Serious: No
  Sender: FDA-Public Use
  Company Number: US-PFIZER INC-2013204963

PATIENT
  Age: 57 Year
  Sex: Male
  Weight: 81.6 kg

DRUGS (6)
  1. DEPO-TESTOSTERONE [Suspect]
     Indication: BLOOD TESTOSTERONE DECREASED
     Dosage: 0.5CC DAILY EVERY 5 DAYS
     Dates: start: 2003
  2. LANTUS [Concomitant]
     Indication: DIABETES MELLITUS
     Dosage: 11 IU, 1X/DAY
  3. HUMALOG [Concomitant]
     Indication: DIABETES MELLITUS
     Dosage: (SLIDING SCALE 1UNIT PER 25MG DECA OF SUGAR IN BLOOD), , 1X/DAY
  4. CALCIUM SUPPLEMENT [Concomitant]
     Indication: OSTEOPENIA
     Dosage: UNK
  5. EPZICOM [Concomitant]
     Indication: HIV TEST POSITIVE
     Dosage: (ABACAVIR SULFATE 600MG/LAMIVUDINE300 MG), 1X/DAY
  6. VIRAMUNE XR [Concomitant]
     Indication: HIV TEST POSITIVE
     Dosage: 400 MG, 1X/DAY

REACTIONS (2)
  - Incorrect product storage [Unknown]
  - Drug ineffective [Unknown]
